FAERS Safety Report 12126221 (Version 1)
Quarter: 2016Q1

REPORT INFORMATION
  Report Type: Spontaneous
  Country: FR (occurrence: FR)
  Receive Date: 20160229
  Receipt Date: 20160229
  Transmission Date: 20160526
  Serious: Yes (Other)
  Sender: FDA-Public Use
  Company Number: FR-HOSPIRA-3181647

PATIENT
  Age: 14 Year
  Sex: Female

DRUGS (1)
  1. VINCRISTINE SULFATE. [Suspect]
     Active Substance: VINCRISTINE SULFATE
     Indication: EWING^S SARCOMA
     Dosage: 4 WEEKLY INFUSIONS DURING INDUCTION; CUMULATIVE DOSE: 7.04 MG/M2
     Route: 041

REACTIONS (1)
  - Neuropathy peripheral [Recovered/Resolved]
